FAERS Safety Report 9891229 (Version 1)
Quarter: 2014Q1

REPORT INFORMATION
  Report Type: Spontaneous
  Country: US (occurrence: None)
  Receive Date: 20140211
  Receipt Date: 20140211
  Transmission Date: 20141002
  Serious: Yes (Other)
  Sender: FDA-Public Use
  Company Number: None

PATIENT
  Age: 63 Year
  Sex: Female
  Weight: 61.24 kg

DRUGS (1)
  1. FENTANYL PATCH [Suspect]
     Indication: RADICULAR PAIN
     Dosage: 1 PATCH?ONCE DAILY?APPLIED TO A SURFACE, USUALLY THE SKIN
     Route: 061
     Dates: start: 20130801, end: 20140210

REACTIONS (10)
  - Drug withdrawal syndrome [None]
  - Tremor [None]
  - Hyperhidrosis [None]
  - Diarrhoea [None]
  - Nausea [None]
  - Malaise [None]
  - Asthenia [None]
  - Chills [None]
  - Drug interaction [None]
  - Inadequate analgesia [None]
